FAERS Safety Report 25720213 (Version 3)
Quarter: 2025Q3

REPORT INFORMATION
  Report Type: Spontaneous
  Country: EU (occurrence: EU)
  Receive Date: 20250825
  Receipt Date: 20250914
  Transmission Date: 20251021
  Serious: Yes (Hospitalization)
  Sender: SANDOZ
  Company Number: EU-NOVPHSZ-PHHY2019IT113805

PATIENT
  Age: 60 Year
  Sex: Female

DRUGS (3)
  1. MYCOPHENOLATE MOFETIL [Suspect]
     Active Substance: MYCOPHENOLATE MOFETIL
     Indication: Polymyositis
     Dosage: 2 G, QD
     Route: 065
  2. LANSOPRAZOLE [Concomitant]
     Active Substance: LANSOPRAZOLE
     Indication: Product used for unknown indication
     Dosage: 30 MG, QD
     Route: 065
  3. PREDNISONE [Concomitant]
     Active Substance: PREDNISONE
     Indication: Product used for unknown indication
     Dosage: 12.5 MG, QD
     Route: 065

REACTIONS (11)
  - Dysphagia [Unknown]
  - Oesophageal ulcer [Unknown]
  - Oesophageal stenosis [Unknown]
  - Oesophageal stenosis [Unknown]
  - Oesophageal ulcer haemorrhage [Unknown]
  - Oral candidiasis [Unknown]
  - Oesophagitis [Unknown]
  - Oesophageal candidiasis [Unknown]
  - Oesophagitis [Unknown]
  - Stenosis [Unknown]
  - Product use in unapproved indication [Unknown]
